FAERS Safety Report 7396698-9 (Version None)
Quarter: 2011Q2

REPORT INFORMATION
  Report Type: 
  Country: None (occurrence: None)
  Receive Date: 20110406
  Receipt Date: 20110325
  Transmission Date: 20111010
  Serious: Yes (Death, Other)
  Sender: FDA-Public Use
  Company Number: US-ROCHE-765653

PATIENT
  Sex: Female
  Weight: 112 kg

DRUGS (30)
  1. FOSAMAX [Concomitant]
     Route: 048
  2. ASTELIN [Concomitant]
  3. FERROUS SULFATE SR [Concomitant]
     Route: 048
  4. LORTAB [Concomitant]
     Route: 048
  5. KLOR-CON [Concomitant]
     Route: 048
  6. ALLOPURINOL [Concomitant]
     Route: 048
  7. BUPROPION HYDROCHLORIDE [Concomitant]
  8. VITAMIN D [Concomitant]
     Route: 048
  9. ATENOLOL [Concomitant]
     Route: 048
  10. DURAGESIC [Concomitant]
     Dosage: 50 UG/HR
  11. CLARITIN [Concomitant]
     Route: 048
  12. MIRALAX [Concomitant]
     Route: 048
  13. CELLCEPT [Suspect]
     Route: 048
  14. DEXTRAN INJ [Concomitant]
     Dosage: 1 DROP IN BOTH EYES DAILY
  15. DIGOXIN [Concomitant]
     Route: 048
  16. NOVOLOG [Concomitant]
     Route: 058
  17. BUMETANIDE [Concomitant]
     Dosage: 2 TABLETS DAILY FOR 3 DAYS AND THEN 1 TABLET DAILY
  18. NEURONTIN [Concomitant]
     Route: 048
  19. LEVEMIR [Concomitant]
     Dosage: DOSE:100UNIT/ML
     Route: 058
  20. ALAWAY [Concomitant]
  21. XOPENEX [Concomitant]
     Route: 055
  22. LEVOTHYROXINE [Concomitant]
     Route: 048
  23. LIDODERM [Concomitant]
  24. MAGNESIUM HYDROXIDE [Concomitant]
     Route: 048
  25. DITROPAN XL [Concomitant]
     Route: 048
  26. SANDIMMUNE [Concomitant]
     Route: 048
  27. PREDNISONE [Concomitant]
     Route: 048
  28. FLONASE [Concomitant]
     Dosage: 2 SPRAYS IN NOSE DAILY
  29. OMEPRAZOLE [Concomitant]
  30. ZOCOR [Concomitant]
     Route: 048

REACTIONS (4)
  - INFECTION [None]
  - DEATH [None]
  - MENTAL STATUS CHANGES [None]
  - RENAL FAILURE [None]
